FAERS Safety Report 12892652 (Version 2)
Quarter: 2017Q1

REPORT INFORMATION
  Report Type: Spontaneous
  Country: US (occurrence: US)
  Receive Date: 20161028
  Receipt Date: 20170329
  Transmission Date: 20170428
  Serious: Yes (Other)
  Sender: FDA-Public Use
  Company Number: US-ELI_LILLY_AND_COMPANY-US201608005185

PATIENT
  Sex: Female

DRUGS (9)
  1. CYMBALTA [Suspect]
     Active Substance: DULOXETINE HYDROCHLORIDE
     Dosage: 30 MG, QD
     Route: 048
     Dates: start: 20100629, end: 20100713
  2. NEURONTIN [Concomitant]
     Active Substance: GABAPENTIN
     Dosage: UNK, UNKNOWN
     Route: 065
  3. KLONOPIN [Concomitant]
     Active Substance: CLONAZEPAM
     Dosage: 0.25 MG, UNKNOWN
     Route: 065
  4. CYMBALTA [Suspect]
     Active Substance: DULOXETINE HYDROCHLORIDE
     Indication: PRODUCT USED FOR UNKNOWN INDICATION
     Dosage: 60 MG, QD
     Route: 048
     Dates: start: 20100417
  5. CLARITINE [Concomitant]
     Active Substance: LORATADINE
     Dosage: UNK, UNKNOWN
     Route: 065
  6. TRAZODONE [Concomitant]
     Active Substance: TRAZODONE HYDROCHLORIDE
     Dosage: 50 MG, UNK
     Route: 065
  7. PRILOSEC [Concomitant]
     Active Substance: OMEPRAZOLE MAGNESIUM
     Dosage: UNK, UNKNOWN
     Route: 065
  8. OXY.IR [Concomitant]
     Dosage: UNK, UNKNOWN
     Route: 065
  9. SOMA [Concomitant]
     Active Substance: CARISOPRODOL
     Dosage: UNK, UNKNOWN
     Route: 065

REACTIONS (13)
  - Insomnia [Unknown]
  - Drug withdrawal syndrome [Unknown]
  - Syncope [Unknown]
  - Head injury [Unknown]
  - Chest discomfort [Unknown]
  - Movement disorder [Unknown]
  - Thinking abnormal [Unknown]
  - Dyspnoea [Unknown]
  - Anger [Unknown]
  - Dizziness [Unknown]
  - Abnormal behaviour [Unknown]
  - Asthenia [Unknown]
  - Fatigue [Unknown]
